FAERS Safety Report 5943628-X (Version None)
Quarter: 2008Q4

REPORT INFORMATION
  Report Type: 
  Country: None (occurrence: None)
  Receive Date: 20081106
  Receipt Date: 20081024
  Transmission Date: 20090506
  Serious: Yes (Hospitalization)
  Sender: FDA-Public Use
  Company Number: US-PFIZER INC-2008037770

PATIENT
  Age: 69 Year
  Sex: Male
  Weight: 74 kg

DRUGS (12)
  1. MARAVIROC [Suspect]
     Indication: HIV TEST POSITIVE
     Route: 048
     Dates: start: 20080328
  2. RALTEGRAVIR [Suspect]
     Indication: HIV TEST POSITIVE
     Route: 048
     Dates: start: 20080328
  3. DARUNAVIR [Suspect]
     Indication: HIV TEST POSITIVE
     Route: 048
     Dates: start: 20080328
  4. RITONAVIR [Concomitant]
     Route: 048
     Dates: start: 20080328
  5. EPZICOM [Concomitant]
     Dates: end: 20080427
  6. BACTRIM [Concomitant]
     Dates: start: 20070611
  7. CATAPRES [Concomitant]
     Dates: start: 20061127
  8. NIASPAN [Concomitant]
     Dates: start: 20061127
  9. COREG [Concomitant]
     Dates: start: 20061023
  10. ASPIRIN [Concomitant]
     Dates: start: 20061023
  11. LIPITOR [Concomitant]
     Dosage: DAILY DOSE:10MG
     Route: 048
     Dates: start: 20080320
  12. ALL OTHER THERAPEUTIC PRODUCTS [Concomitant]
     Dosage: TEXT:50/500 MG
     Route: 048
     Dates: start: 20080321

REACTIONS (1)
  - B-CELL LYMPHOMA [None]
